FAERS Safety Report 8714223 (Version 4)
Quarter: 2012Q4

REPORT INFORMATION
  Report Type: 
  Country: US (occurrence: US)
  Receive Date: 20120809
  Receipt Date: 20121025
  Transmission Date: 20130627
  Serious: Yes (Hospitalization)
  Sender: FDA-Public Use
  Company Number: US-BIOGENIDEC-2012BI029592

PATIENT
  Age: 20 Year
  Sex: Female

DRUGS (11)
  1. TYSABRI [Suspect]
     Indication: CROHN^S DISEASE
     Route: 042
     Dates: start: 20120616
  2. LORAZEPAM [Concomitant]
  3. PROMETHAZINE [Concomitant]
  4. SENNA [Concomitant]
  5. LIDOCAINE [Concomitant]
     Route: 061
  6. METHADONE [Concomitant]
  7. ONDANSETRON [Concomitant]
  8. LEVONORGESTREL [Concomitant]
  9. REMERON [Concomitant]
  10. PEPCID [Concomitant]
  11. IBUPROFEN [Concomitant]

REACTIONS (3)
  - Perirectal abscess [Recovered/Resolved]
  - Septic shock [Recovered/Resolved]
  - Dehydration [Unknown]
